FAERS Safety Report 15349623 (Version 1)
Quarter: 2018Q3

REPORT INFORMATION
  Report Type: Spontaneous
  Country: US (occurrence: US)
  Receive Date: 20180904
  Receipt Date: 20180904
  Transmission Date: 20181010
  Serious: Yes (Hospitalization)
  Sender: FDA-Public Use
  Company Number: US-BAYER-2018-160969

PATIENT
  Age: 75 Year
  Sex: Male

DRUGS (2)
  1. NEXAVAR [Suspect]
     Active Substance: SORAFENIB
     Indication: DESMOID TUMOUR
     Dosage: 200 MG, QD
     Route: 048
     Dates: start: 201808, end: 201808
  2. NEXAVAR [Suspect]
     Active Substance: SORAFENIB
     Indication: DESMOID TUMOUR
     Dosage: 400 MG, QD
     Route: 048
     Dates: start: 201807, end: 201808

REACTIONS (8)
  - Hepatic function abnormal [Recovering/Resolving]
  - Drug ineffective [None]
  - Off label use [None]
  - Pancreatic enzymes increased [Recovering/Resolving]
  - Dyspepsia [Recovering/Resolving]
  - Throat irritation [Recovering/Resolving]
  - Pain [Recovering/Resolving]
  - Product use in unapproved indication [None]

NARRATIVE: CASE EVENT DATE: 201808
